FAERS Safety Report 25979968 (Version 1)
Quarter: 2025Q4

REPORT INFORMATION
  Report Type: Spontaneous
  Country: US (occurrence: None)
  Receive Date: 20251029
  Receipt Date: 20251029
  Transmission Date: 20260118
  Serious: Yes (Hospitalization, Disabling)
  Sender: FDA-CTU
  Company Number: None

PATIENT
  Sex: Male
  Weight: 94.5 kg

DRUGS (11)
  1. PALIPERIDONE [Suspect]
     Active Substance: PALIPERIDONE
     Indication: Schizoaffective disorder
     Dosage: OTHER QUANTITY : 1 TABLET(S);?FREQUENCY : AT BEDTIME;?
     Route: 048
  2. INVEGA [Suspect]
     Active Substance: PALIPERIDONE
  3. DEVICE [Concomitant]
     Active Substance: DEVICE
  4. LISINOPRIL [Concomitant]
     Active Substance: LISINOPRIL
  5. ATORVASTATIN [Concomitant]
     Active Substance: ATORVASTATIN
  6. ASPIRIN [Concomitant]
     Active Substance: ASPIRIN
  7. NAPROXEN [Concomitant]
     Active Substance: NAPROXEN
  8. ACETAMINOPHEN [Concomitant]
     Active Substance: ACETAMINOPHEN
  9. CLARITIN [Concomitant]
     Active Substance: LORATADINE
  10. MONTELUKAST [Concomitant]
     Active Substance: MONTELUKAST
  11. SODIUM [Concomitant]
     Active Substance: SODIUM

REACTIONS (22)
  - Pneumonia [None]
  - Pleural effusion [None]
  - Respiratory tract infection [None]
  - Dyspnoea [None]
  - Cold sweat [None]
  - Confusional state [None]
  - Back pain [None]
  - Dry skin [None]
  - Somnolence [None]
  - Headache [None]
  - Heart rate irregular [None]
  - Vomiting [None]
  - Anxiety [None]
  - Weight fluctuation [None]
  - Dry mouth [None]
  - Abdominal discomfort [None]
  - Dizziness [None]
  - Priapism [None]
  - Balance disorder [None]
  - Myalgia [None]
  - Dysphagia [None]
  - Product dosage form issue [None]
